FAERS Safety Report 7385942-X (Version None)
Quarter: 2011Q1

REPORT INFORMATION
  Report Type: 
  Country: None (occurrence: None)
  Receive Date: 20110331
  Receipt Date: 20110318
  Transmission Date: 20110831
  Serious: Yes (Death, Life-Threatening, Other)
  Sender: FDA-Public Use
  Company Number: JP-CELGENEUS-087-21880-10091398

PATIENT
  Sex: Female

DRUGS (36)
  1. REVLIMID [Suspect]
     Dosage: 10 MILLIGRAM
     Route: 048
     Dates: start: 20100903, end: 20100907
  2. PREDONINE [Concomitant]
     Indication: MULTIPLE MYELOMA
     Dosage: 20 MILLIGRAM
     Route: 048
     Dates: start: 20100826, end: 20100902
  3. PREDONINE [Concomitant]
     Dosage: 40 MILLIGRAM
     Route: 065
     Dates: start: 20100910, end: 20100910
  4. PREDONINE [Concomitant]
     Dosage: 30 MILLIGRAM
     Route: 065
     Dates: start: 20100911, end: 20100916
  5. HUSTAZOL [Concomitant]
     Indication: ILL-DEFINED DISORDER
     Dosage: 30 MILLIGRAM
     Route: 065
     Dates: start: 20100903, end: 20100912
  6. DOBUTREX [Concomitant]
     Dosage: 5 MILLILITER
     Route: 041
     Dates: start: 20100916, end: 20100916
  7. GLUCOSE [Concomitant]
     Dosage: 40 MILLILITER
     Route: 065
     Dates: start: 20100916, end: 20100916
  8. BONALON [Concomitant]
     Indication: MULTIPLE MYELOMA
     Dosage: 5 MILLIGRAM
     Route: 065
     Dates: start: 20100826, end: 20100915
  9. PARIET [Concomitant]
     Indication: PROPHYLAXIS
     Dosage: 10 MILLIGRAM
     Route: 065
     Dates: end: 20100914
  10. GASTER [Concomitant]
     Dosage: 20 MILLIGRAM
     Route: 041
     Dates: start: 20100916, end: 20100917
  11. TRANSAMIN [Concomitant]
     Dosage: 5 MILLILITER
     Route: 041
     Dates: start: 20100916, end: 20100916
  12. SOLU-MEDROL [Concomitant]
     Dosage: 1000 MILLIGRAM
     Route: 041
     Dates: start: 20100916, end: 20100916
  13. LASIX [Concomitant]
     Dosage: 4 MILLIGRAM
     Route: 051
     Dates: start: 20100916, end: 20100916
  14. MYSLEE [Concomitant]
     Indication: ILL-DEFINED DISORDER
     Dosage: 10 MILLIGRAM
     Route: 065
     Dates: start: 20100817, end: 20100908
  15. MINOFIT [Concomitant]
     Dosage: 40 MILLILITER
     Route: 051
     Dates: end: 20100913
  16. MEROPEN [Concomitant]
     Route: 065
     Dates: start: 20100917, end: 20100917
  17. PREDONINE [Concomitant]
     Dosage: 15 MILLIGRAM
     Route: 065
     Dates: start: 20100903, end: 20100905
  18. URSO 250 [Concomitant]
     Dosage: 600 MILLIGRAM
     Route: 065
     Dates: end: 20100915
  19. DORMICUM [Concomitant]
     Dosage: 30 MILLILITER
     Route: 041
     Dates: start: 20100915, end: 20100915
  20. ELASPOL [Concomitant]
     Dosage: 280 MILLIGRAM
     Route: 041
     Dates: start: 20100916, end: 20100916
  21. GLUCOSE [Concomitant]
     Dosage: 100 MILLILITER
     Route: 065
     Dates: start: 20100916, end: 20100916
  22. NOVOLIN R [Concomitant]
     Dosage: 100IU/ML, 8IU
     Route: 065
     Dates: start: 20100916, end: 20100916
  23. PREDONINE [Concomitant]
     Dosage: 10 MILLIGRAM
     Route: 065
     Dates: start: 20100906, end: 20100909
  24. TRANSAMIN [Concomitant]
     Dosage: 1 GRAM
     Route: 041
     Dates: start: 20100915, end: 20100915
  25. DORMICUM [Concomitant]
     Dosage: 24 MILLILITER
     Route: 041
     Dates: start: 20100917, end: 20100917
  26. MIOBLOCK [Concomitant]
     Dosage: 2 MILLILITER
     Route: 041
     Dates: start: 20100916, end: 20100916
  27. ADRENALIN IN OIL INJ [Concomitant]
     Dosage: 6 SYRINGES
     Route: 041
     Dates: start: 20100917, end: 20100917
  28. SOLU-MEDROL [Concomitant]
     Dosage: 1000 MILLIGRAM
     Route: 041
     Dates: start: 20100915, end: 20100915
  29. ROCEPHIN [Concomitant]
     Dosage: 2 GRAM
     Route: 041
     Dates: start: 20100915, end: 20100916
  30. DORMICUM [Concomitant]
     Dosage: 70 MILLIGRAM
     Route: 041
     Dates: start: 20100915, end: 20100915
  31. LASIX [Concomitant]
     Dosage: 22 MILLILITER
     Route: 041
     Dates: start: 20100916, end: 20100916
  32. LASIX [Concomitant]
     Dosage: 24 MILLIGRAM
     Route: 065
     Dates: start: 20100917, end: 20100917
  33. LASIX [Concomitant]
     Dosage: 16 MILLILITER
     Route: 051
     Dates: start: 20100917, end: 20100917
  34. DOPMIN-K [Concomitant]
     Dosage: 200 MILLILITER
     Route: 041
     Dates: start: 20100916, end: 20100916
  35. ALBUMIN (HUMAN) [Concomitant]
     Dosage: 12.5G/50ML 2V
     Route: 041
     Dates: start: 20100916, end: 20100916
  36. CATABON HI [Concomitant]
     Dosage: 200 MILLILITER
     Route: 041
     Dates: start: 20100916, end: 20100917

REACTIONS (6)
  - PNEUMONIA [None]
  - NEUTROPENIA [None]
  - HEPATITIS C [None]
  - CARDIAC FAILURE [None]
  - PLATELET COUNT DECREASED [None]
  - MULTI-ORGAN FAILURE [None]
